FAERS Safety Report 12708959 (Version 1)
Quarter: 2016Q3

REPORT INFORMATION
  Report Type: Spontaneous
  Country: CH (occurrence: CH)
  Receive Date: 20160901
  Receipt Date: 20160901
  Transmission Date: 20161109
  Serious: Yes (Hospitalization)
  Sender: FDA-Public Use
  Company Number: CH-ASTRAZENECA-2016SE90924

PATIENT
  Age: 35144 Day
  Sex: Female

DRUGS (6)
  1. BELOC ZOK [Suspect]
     Active Substance: METOPROLOL SUCCINATE
     Route: 048
     Dates: end: 20160731
  2. ASS CARDIO [Suspect]
     Active Substance: ASPIRIN
     Route: 065
     Dates: end: 20160728
  3. TOREM [Suspect]
     Active Substance: TORSEMIDE
     Route: 065
     Dates: end: 20160731
  4. AMIODARON-MEPHA [Suspect]
     Active Substance: AMIODARONE
     Route: 065
  5. POLYSTYRENE SULFONATE [Concomitant]
     Active Substance: POLYSTYRENE SULFONIC ACID
     Dates: end: 20160731
  6. CIPRALEX [Suspect]
     Active Substance: ESCITALOPRAM OXALATE
     Route: 065
     Dates: end: 20160731

REACTIONS (12)
  - Haemorrhage intracranial [None]
  - Contusion [Unknown]
  - Skin injury [Unknown]
  - Fall [Not Recovered/Not Resolved]
  - Asthenia [Unknown]
  - Craniocerebral injury [Unknown]
  - Gait disturbance [Unknown]
  - Laceration [Unknown]
  - Dizziness [Unknown]
  - Face injury [None]
  - Dizziness postural [None]
  - Hyponatraemia [None]

NARRATIVE: CASE EVENT DATE: 20160728
